FAERS Safety Report 4922920-1 (Version None)
Quarter: 2006Q1

REPORT INFORMATION
  Report Type: 
  Country: None (occurrence: None)
  Receive Date: 20060224
  Receipt Date: 20050920
  Transmission Date: 20060701
  Serious: Yes (Death, Hospitalization)
  Sender: FDA-Public Use
  Company Number: US-MERCK-0509USA03114

PATIENT
  Age: 81 Year
  Sex: Female

DRUGS (8)
  1. VIOXX [Suspect]
     Indication: ARTHRITIS
     Route: 048
     Dates: start: 20021101, end: 20030901
  2. PAXIL [Concomitant]
     Route: 065
  3. ATENOLOL [Concomitant]
     Indication: HYPERTENSION
     Route: 065
     Dates: start: 20010901, end: 20030501
  4. SPIRONOLACTONE [Concomitant]
     Route: 065
     Dates: start: 20010601, end: 20030401
  5. DETROL [Concomitant]
     Route: 065
  6. DILTIAZEM HCL [Concomitant]
     Route: 065
     Dates: start: 20021101, end: 20021201
  7. SYNTHROID [Concomitant]
     Route: 065
  8. ASPIRIN [Concomitant]
     Route: 065
     Dates: start: 20030901, end: 20050101

REACTIONS (6)
  - CYANOSIS [None]
  - DEATH [None]
  - GASTRIC HAEMORRHAGE [None]
  - MYOCARDIAL INFARCTION [None]
  - PULMONARY THROMBOSIS [None]
  - THROMBOSIS [None]
